FAERS Safety Report 19022163 (Version 1)
Quarter: 2021Q1

REPORT INFORMATION
  Report Type: Spontaneous
  Country: GB (occurrence: GB)
  Receive Date: 20210317
  Receipt Date: 20210317
  Transmission Date: 20210420
  Serious: Yes (Other)
  Sender: FDA-Public Use
  Company Number: GB-EISAI MEDICAL RESEARCH-EC-2021-089248

PATIENT
  Age: 71 Year
  Sex: Male
  Weight: 69.85 kg

DRUGS (5)
  1. ATORVASTATIN [Concomitant]
     Active Substance: ATORVASTATIN
     Indication: ILL-DEFINED DISORDER
     Dosage: DOSE AND FREQUENCY NOT PROVIDED
  2. PARIET [Suspect]
     Active Substance: RABEPRAZOLE SODIUM
     Indication: GASTROOESOPHAGEAL REFLUX DISEASE
     Route: 048
     Dates: start: 2003
  3. BENDROFLUMETHIAZIDE [Concomitant]
     Active Substance: BENDROFLUMETHIAZIDE
     Indication: ILL-DEFINED DISORDER
     Dosage: DOSE AND FREQUENCY NOT PROVIDED
  4. PARIET [Suspect]
     Active Substance: RABEPRAZOLE SODIUM
     Route: 048
  5. CELIPROLOL [Concomitant]
     Active Substance: CELIPROLOL
     Indication: ILL-DEFINED DISORDER
     Dosage: DOSE AND FREQUENCY NOT PROVIDED

REACTIONS (2)
  - Medication error [Unknown]
  - Dizziness [Unknown]

NARRATIVE: CASE EVENT DATE: 20210307
